FAERS Safety Report 6761579-8 (Version None)
Quarter: 2010Q2

REPORT INFORMATION
  Report Type: 
  Country: None (occurrence: None)
  Receive Date: 20100609
  Receipt Date: 20100602
  Transmission Date: 20101027
  Serious: Yes (Hospitalization)
  Sender: FDA-Public Use
  Company Number: US-BIOGENIDEC-2010BI018762

PATIENT
  Age: 48 Year
  Sex: Female

DRUGS (7)
  1. AVONEX [Suspect]
     Indication: MULTIPLE SCLEROSIS
     Route: 030
     Dates: start: 20010101, end: 20050101
  2. AVONEX [Suspect]
     Route: 030
     Dates: start: 20090501
  3. PREMARIN [Concomitant]
  4. NEURONTIN [Concomitant]
  5. CELEBREX [Concomitant]
  6. SYNTHROID [Concomitant]
  7. CITALOPRAM [Concomitant]

REACTIONS (7)
  - ADVERSE DRUG REACTION [None]
  - FALL [None]
  - FATIGUE [None]
  - FIBROMYALGIA [None]
  - LOSS OF CONSCIOUSNESS [None]
  - MALAISE [None]
  - TEMPERATURE INTOLERANCE [None]
